FAERS Safety Report 20834396 (Version 1)
Quarter: 2022Q2

REPORT INFORMATION
  Report Type: Spontaneous
  Country: BR (occurrence: None)
  Receive Date: 20220516
  Receipt Date: 20220516
  Transmission Date: 20220720
  Serious: Yes (Hospitalization, Other)
  Sender: FDA-Public Use
  Company Number: BR-ROCHE-3091959

PATIENT
  Age: 61 Year

DRUGS (1)
  1. HERCEPTIN [Suspect]
     Active Substance: TRASTUZUMAB
     Indication: Breast cancer
     Route: 065

REACTIONS (6)
  - Tremor [Not Recovered/Not Resolved]
  - Dyslexia [Unknown]
  - Abdominal distension [Recovered/Resolved]
  - Behaviour disorder [Unknown]
  - Pruritus [Not Recovered/Not Resolved]
  - Thrombosis [Unknown]

NARRATIVE: CASE EVENT DATE: 20220201
